FAERS Safety Report 7426347-2 (Version None)
Quarter: 2011Q2

REPORT INFORMATION
  Report Type: 
  Country: None (occurrence: None)
  Receive Date: 20110420
  Receipt Date: 20110412
  Transmission Date: 20111010
  Serious: Yes (Death)
  Sender: FDA-Public Use
  Company Number: B0714251A

PATIENT
  Sex: Female

DRUGS (8)
  1. MOXIFLOXACIN [Concomitant]
     Route: 065
     Dates: start: 20110121, end: 20110211
  2. ANIDULAFUNGIN [Concomitant]
     Dates: start: 20110218, end: 20110221
  3. ZANAMIVIR [Suspect]
     Indication: H1N1 INFLUENZA
     Route: 042
     Dates: end: 20110216
  4. DIGITOXIN TAB [Concomitant]
     Dosage: .25MG PER DAY
     Dates: end: 20110221
  5. AMPHOTERICIN B [Concomitant]
     Dates: start: 20110214, end: 20110221
  6. DORIPENEM [Concomitant]
     Dates: start: 20110111, end: 20110217
  7. METHYLPREDNISOLONE [Concomitant]
     Route: 065
     Dates: start: 20110211, end: 20110221
  8. PANTOPRAZOLE SODIUM [Concomitant]
     Dosage: 40MG PER DAY
     Dates: start: 20110211, end: 20110221

REACTIONS (5)
  - DEATH [None]
  - BRONCHOPULMONARY ASPERGILLOSIS [None]
  - HEPATIC FAILURE [None]
  - HERPES SIMPLEX [None]
  - CARDIAC FAILURE [None]
